FAERS Safety Report 18316851 (Version 1)
Quarter: 2020Q3

REPORT INFORMATION
  Report Type: Spontaneous
  Country: US (occurrence: US)
  Receive Date: 20200928
  Receipt Date: 20200928
  Transmission Date: 20201103
  Serious: No
  Sender: FDA-Public Use
  Company Number: US-SUN PHARMACEUTICAL INDUSTRIES LTD-2020R1-255807

PATIENT
  Sex: Male

DRUGS (1)
  1. ODOMZO [Suspect]
     Active Substance: SONIDEGIB
     Indication: COLON CANCER
     Dosage: 200 MILLIGRAM, DAILY
     Route: 048
     Dates: start: 20200718

REACTIONS (1)
  - Alopecia [Not Recovered/Not Resolved]
